FAERS Safety Report 19803576 (Version 2)
Quarter: 2021Q3

REPORT INFORMATION
  Report Type: Report from Study
  Country: CA (occurrence: CA)
  Receive Date: 20210908
  Receipt Date: 20210928
  Transmission Date: 20211014
  Serious: Yes (Hospitalization)
  Sender: FDA-Public Use
  Company Number: CA-JNJFOC-20210906983

PATIENT
  Age: 24 Year
  Sex: Male
  Weight: 73.9 kg

DRUGS (3)
  1. REMICADE [Suspect]
     Active Substance: INFLIXIMAB
     Dosage: LAST TREATMENT RECEIVED ON 12?JUL?2021
     Route: 042
     Dates: start: 20130730
  2. REMICADE [Suspect]
     Active Substance: INFLIXIMAB
     Indication: CROHN^S DISEASE
     Route: 042
     Dates: start: 201306
  3. REMICADE [Suspect]
     Active Substance: INFLIXIMAB
     Dosage: REINDUCTION AT 5 MG/KG AT WEEKS 0, 2, 6 THEN 5 MG/KG EVERY 8 WEEKS.
     Route: 042
     Dates: start: 2021

REACTIONS (2)
  - Intestinal resection [Recovering/Resolving]
  - Drug specific antibody present [Unknown]

NARRATIVE: CASE EVENT DATE: 2021
